FAERS Safety Report 9240599 (Version 1)
Quarter: 2013Q2

REPORT INFORMATION
  Report Type: Report from Study
  Country: US (occurrence: US)
  Receive Date: 20130418
  Receipt Date: 20130418
  Transmission Date: 20140414
  Serious: Yes (Hospitalization)
  Sender: FDA-Public Use
  Company Number: US-ABBOTT-13P-163-1076331-00

PATIENT
  Age: 62 Year
  Sex: Female

DRUGS (3)
  1. HUMIRA [Suspect]
     Indication: PSORIATIC ARTHROPATHY
     Route: 058
     Dates: start: 20120801, end: 20120801
  2. HUMIRA [Suspect]
     Route: 058
     Dates: start: 20120809, end: 20130328
  3. WELLBUTRIN [Suspect]
     Indication: PRODUCT USED FOR UNKNOWN INDICATION
     Dates: start: 20130321, end: 20130328

REACTIONS (2)
  - Allergic oedema [Recovered/Resolved]
  - Hypersensitivity [Recovered/Resolved]
